FAERS Safety Report 9335641 (Version 1)
Quarter: 2013Q2

REPORT INFORMATION
  Report Type: Report from Study
  Country: AU (occurrence: AU)
  Receive Date: 20130607
  Receipt Date: 20130607
  Transmission Date: 20140414
  Serious: Yes (Other)
  Sender: FDA-Public Use
  Company Number: AU-ROCHE-1232626

PATIENT
  Sex: Female

DRUGS (1)
  1. RANIBIZUMAB [Suspect]
     Indication: AGE-RELATED MACULAR DEGENERATION
     Route: 050
     Dates: start: 20120113

REACTIONS (4)
  - Scotoma [Unknown]
  - Lacrimation increased [Unknown]
  - Foreign body sensation in eyes [Recovering/Resolving]
  - Ocular discomfort [Recovering/Resolving]
